FAERS Safety Report 8763811 (Version 2)
Quarter: 2012Q4

REPORT INFORMATION
  Report Type: 
  Country: ES (occurrence: ES)
  Receive Date: 20120830
  Receipt Date: 20121004
  Transmission Date: 20130627
  Serious: Yes (Other)
  Sender: FDA-Public Use
  Company Number: ES-PFIZER INC-2012210506

PATIENT
  Age: 34 Year
  Sex: Female

DRUGS (2)
  1. DOSTINEX [Suspect]
     Indication: BLOOD PROLACTIN INCREASED
     Dosage: UNK
     Dates: start: 2011
  2. DOSTINEX [Suspect]
     Dosage: half tablet on Tuesdays and half tablet on Thursdays
     Route: 048
     Dates: start: 20120628

REACTIONS (5)
  - Angina pectoris [Not Recovered/Not Resolved]
  - Tachycardia [Unknown]
  - Dizziness [Recovering/Resolving]
  - Fatigue [Unknown]
  - Asthenia [Recovering/Resolving]
